FAERS Safety Report 17961977 (Version 1)
Quarter: 2020Q2

REPORT INFORMATION
  Report Type: Report from Study
  Country: None (occurrence: PR)
  Receive Date: 20200629
  Receipt Date: 20200629
  Transmission Date: 20200714
  Serious: Yes (Other)
  Sender: FDA-Public Use
  Company Number: PR-ABBVIE-20K-131-3460921-00

PATIENT
  Age: 58 Year
  Sex: Female

DRUGS (1)
  1. HUMIRA [Suspect]
     Active Substance: ADALIMUMAB
     Indication: RHEUMATOID ARTHRITIS
     Route: 058
     Dates: start: 20100802, end: 202004

REACTIONS (6)
  - Blood glucose increased [Unknown]
  - Depression [Not Recovered/Not Resolved]
  - Anal incontinence [Unknown]
  - Vomiting [Unknown]
  - Hypotension [Unknown]
  - Seizure [Unknown]

NARRATIVE: CASE EVENT DATE: 2020
